FAERS Safety Report 5285553-6 (Version None)
Quarter: 2007Q1

REPORT INFORMATION
  Report Type: 
  Country: None (occurrence: None)
  Receive Date: 20061229
  Receipt Date: 20061030
  Transmission Date: 20070707
  Serious: Yes (Other)
  Sender: FDA-Public Use
  Company Number: 2006UW20780

PATIENT
  Age: 42 Year
  Sex: Female
  Weight: 104.32 kg

DRUGS (6)
  1. CRESTOR [Suspect]
     Indication: PROPHYLAXIS
     Dosage: 10 MG PO
     Route: 048
     Dates: start: 20030101
  2. GLUCOPHAGE [Concomitant]
  3. AVANDIA [Concomitant]
  4. EFFEXOR [Concomitant]
  5. LANTUS [Concomitant]
  6. BYETTA [Concomitant]

REACTIONS (1)
  - NEPHROLITHIASIS [None]
